FAERS Safety Report 5295823-3 (Version None)
Quarter: 2007Q2

REPORT INFORMATION
  Report Type: 
  Country: None (occurrence: None)
  Receive Date: 20070410
  Receipt Date: 20070410
  Transmission Date: 20071010
  Serious: No
  Sender: FDA-Public Use
  Company Number: None

PATIENT

DRUGS (2)
  1. ALBUTEROL SULATE [Suspect]
     Dosage: SYRUP
  2. ALBUTEROL SULATE [Suspect]
     Dosage: SOLUTION, CONCENTRATE

REACTIONS (5)
  - INCORRECT DOSE ADMINISTERED [None]
  - INCORRECT ROUTE OF DRUG ADMINISTRATION [None]
  - IRRITABILITY [None]
  - MEDICATION ERROR [None]
  - RESTLESSNESS [None]
